FAERS Safety Report 10021124 (Version 1)
Quarter: 2014Q1

REPORT INFORMATION
  Report Type: Spontaneous
  Country: US (occurrence: None)
  Receive Date: 20140318
  Receipt Date: 20140318
  Transmission Date: 20141002
  Serious: Yes (Disabling)
  Sender: FDA-Public Use
  Company Number: None

PATIENT
  Age: 40 Year
  Sex: Female
  Weight: 53.52 kg

DRUGS (1)
  1. LEXAPRO GENERIC 10MG [Suspect]
     Indication: ANXIETY
     Dosage: 1 TAB
     Route: 048
     Dates: start: 20131017, end: 20131122

REACTIONS (7)
  - Diarrhoea [None]
  - Ear pain [None]
  - Hot flush [None]
  - Insomnia [None]
  - Anxiety [None]
  - Vitreous floaters [None]
  - Tinnitus [None]
